FAERS Safety Report 10505686 (Version 2)
Quarter: 2015Q3

REPORT INFORMATION
  Report Type: Spontaneous
  Country: CH (occurrence: CH)
  Receive Date: 20141008
  Receipt Date: 20150811
  Transmission Date: 20151125
  Serious: Yes (Other)
  Sender: FDA-Public Use
  Company Number: CH-GE HEALTHCARE MEDICAL DIAGNOSTICS-OMPQ-PR-1409S-1220

PATIENT
  Age: 38 Year
  Sex: Female

DRUGS (16)
  1. MORPHINE [Suspect]
     Active Substance: MORPHINE
     Indication: SURGERY
     Dosage: DOSE NOT REPORTED
     Route: 064
     Dates: start: 20140714, end: 20140714
  2. PHENYLEPHRIN [Suspect]
     Active Substance: PHENYLEPHRINE HYDROCHLORIDE
     Indication: PROCEDURAL HYPOTENSION
     Route: 064
     Dates: start: 20140714, end: 20140714
  3. OMNIPAQUE [Suspect]
     Active Substance: IOHEXOL
     Indication: DIAGNOSTIC PROCEDURE
  4. CEFTRIAXONE. [Concomitant]
     Active Substance: CEFTRIAXONE
     Indication: APPENDICITIS
     Route: 064
     Dates: start: 20140714, end: 20140714
  5. IRFEN [Suspect]
     Active Substance: IBUPROFEN
     Indication: PROCEDURAL PAIN
     Route: 064
     Dates: start: 20140714
  6. SUFENTA [Suspect]
     Active Substance: SUFENTANIL CITRATE
     Indication: SURGERY
     Route: 064
     Dates: start: 20140714, end: 20140714
  7. EPHEDRIN [Suspect]
     Active Substance: EPHEDRINE HYDROCHLORIDE
     Indication: PROCEDURAL HYPOTENSION
     Route: 064
     Dates: start: 20140714, end: 20140714
  8. PROPOFOL. [Suspect]
     Active Substance: PROPOFOL
     Indication: SURGERY
     Route: 064
     Dates: start: 20140714, end: 20140714
  9. METRONIDAZOLE. [Concomitant]
     Active Substance: METRONIDAZOLE
     Indication: APPENDICITIS
     Route: 064
     Dates: start: 20140714, end: 20140714
  10. NEXIUM [Concomitant]
     Active Substance: ESOMEPRAZOLE MAGNESIUM
     Indication: PROPHYLAXIS
     Route: 064
     Dates: start: 20140714
  11. DROPERIDOL. [Suspect]
     Active Substance: DROPERIDOL
     Indication: PROCEDURAL NAUSEA
     Route: 064
     Dates: start: 20140714, end: 20140714
  12. CLEXANE [Concomitant]
     Active Substance: ENOXAPARIN SODIUM
     Indication: PROPHYLAXIS
     Route: 064
     Dates: start: 20140714, end: 20140715
  13. TORA-DOL [Suspect]
     Active Substance: KETOROLAC TROMETHAMINE
     Indication: SURGERY
     Route: 064
     Dates: start: 20140714, end: 20140714
  14. OMNIPAQUE [Suspect]
     Active Substance: IOHEXOL
     Indication: APPENDICITIS
     Route: 064
     Dates: start: 20140714, end: 20140714
  15. DAFALGAN [Suspect]
     Active Substance: ACETAMINOPHEN
     Indication: PROCEDURAL PAIN
     Route: 064
     Dates: start: 20140714
  16. ESMERON [Suspect]
     Active Substance: ROCURONIUM BROMIDE
     Indication: SURGERY
     Route: 064
     Dates: start: 20140714, end: 20140714

REACTIONS (2)
  - Abortion induced [Recovered/Resolved]
  - Exposure during pregnancy [Recovered/Resolved]

NARRATIVE: CASE EVENT DATE: 20140714
